FAERS Safety Report 14947007 (Version 1)
Quarter: 2018Q2

REPORT INFORMATION
  Report Type: Spontaneous
  Country: FR (occurrence: FR)
  Receive Date: 20180529
  Receipt Date: 20180529
  Transmission Date: 20180711
  Serious: Yes (Other)
  Sender: FDA-Public Use
  Company Number: FR-MERCK KGAA-2048581

PATIENT
  Age: 56 Year
  Sex: Female

DRUGS (1)
  1. NOVOTHYROX [Suspect]
     Active Substance: LEVOTHYROXINE SODIUM
     Indication: PRODUCT USED FOR UNKNOWN INDICATION
     Dates: start: 2017, end: 2017

REACTIONS (30)
  - Abdominal pain [None]
  - Burning sensation [None]
  - Musculoskeletal stiffness [None]
  - Somnolence [None]
  - Mood swings [None]
  - Irritability [None]
  - Weight increased [None]
  - Mental impairment [None]
  - Blood alkaline phosphatase [None]
  - Depression [None]
  - Dyspepsia [None]
  - Disturbance in attention [None]
  - Fatigue [Recovered/Resolved]
  - Hyperhidrosis [None]
  - Muscle spasms [None]
  - Headache [None]
  - Blood creatine phosphokinase increased [None]
  - Abdominal pain upper [None]
  - Sensation of foreign body [None]
  - Alopecia [None]
  - Insomnia [None]
  - Social avoidant behaviour [None]
  - Bone pain [None]
  - Arthralgia [None]
  - Pain [None]
  - Dysphagia [None]
  - Memory impairment [None]
  - Gamma-glutamyltransferase increased [None]
  - Asthenia [None]
  - Diarrhoea [None]

NARRATIVE: CASE EVENT DATE: 20170905
